FAERS Safety Report 5808478-3 (Version None)
Quarter: 2008Q3

REPORT INFORMATION
  Report Type: 
  Country: None (occurrence: None)
  Receive Date: 20080714
  Receipt Date: 20080702
  Transmission Date: 20090109
  Serious: Yes (Death)
  Sender: FDA-Public Use
  Company Number: AR-ELI_LILLY_AND_COMPANY-AR200806006385

PATIENT
  Age: 84 Year
  Sex: Female
  Weight: 60 kg

DRUGS (2)
  1. ZYPREXA [Suspect]
     Indication: DEMENTIA ALZHEIMER'S TYPE
     Dosage: 2.5 MG, UNK
     Route: 048
     Dates: start: 20080101
  2. ZYPREXA [Suspect]
     Dosage: 5 MG, DAILY (1/D)
     Route: 048
     Dates: start: 20080101, end: 20080101

REACTIONS (1)
  - CARDIO-RESPIRATORY ARREST [None]
